FAERS Safety Report 6317108-6 (Version None)
Quarter: 2009Q3

REPORT INFORMATION
  Report Type: 
  Country: None (occurrence: None)
  Receive Date: 20090819
  Receipt Date: 20090731
  Transmission Date: 20100115
  Serious: Yes (Other)
  Sender: FDA-Public Use
  Company Number: 2009-1701

PATIENT
  Age: 34 Year
  Sex: Female
  Weight: 53 kg

DRUGS (5)
  1. DYSPORT [Suspect]
     Dosage: 63.5 UNITS, ONCE, INTROV
     Dates: start: 20090722, end: 20090722
  2. DYSPORT [Suspect]
  3. ZOLPIDEM [Concomitant]
  4. NIACINAMIDE [Concomitant]
  5. VITAMIN (NICOTINAM-IDE) [Concomitant]

REACTIONS (11)
  - ANXIETY [None]
  - BLOOD POTASSIUM DECREASED [None]
  - DISTURBANCE IN ATTENTION [None]
  - DIZZINESS [None]
  - HEAD DISCOMFORT [None]
  - HYPERSENSITIVITY [None]
  - HYPOAESTHESIA [None]
  - HYPOAESTHESIA FACIAL [None]
  - HYPOAESTHESIA ORAL [None]
  - MUSCULAR WEAKNESS [None]
  - NASAL CONGESTION [None]
